FAERS Safety Report 7124930-5 (Version None)
Quarter: 2010Q4

REPORT INFORMATION
  Report Type: 
  Country: None (occurrence: None)
  Receive Date: 20101129
  Receipt Date: 20101125
  Transmission Date: 20110411
  Serious: Yes (Death, Hospitalization, Other)
  Sender: FDA-Public Use
  Company Number: PHHY2010NL77824

PATIENT
  Sex: Male

DRUGS (3)
  1. ZOMETA [Suspect]
     Indication: PROSTATE CANCER METASTATIC
     Dosage: 4 MG/5 ML, PER 21 DAYS
     Dates: start: 20100823
  2. ZOMETA [Suspect]
     Dosage: 4 MG/5 ML, PER 21 DAYS
     Dates: start: 20101026
  3. PREDNISONE [Concomitant]

REACTIONS (7)
  - AORTIC THROMBOSIS [None]
  - BLOOD INSULIN INCREASED [None]
  - DEATH [None]
  - FOOT AMPUTATION [None]
  - GENERAL PHYSICAL HEALTH DETERIORATION [None]
  - PNEUMONIA [None]
  - POOR PERIPHERAL CIRCULATION [None]
